FAERS Safety Report 6666499-5 (Version None)
Quarter: 2010Q2

REPORT INFORMATION
  Report Type: 
  Country: None (occurrence: None)
  Receive Date: 20100402
  Receipt Date: 20100326
  Transmission Date: 20101027
  Serious: Yes (Other)
  Sender: FDA-Public Use
  Company Number: US-GILEAD-2010-0028241

PATIENT
  Sex: Female

DRUGS (1)
  1. LETAIRIS [Suspect]
     Indication: PULMONARY ARTERIAL HYPERTENSION
     Route: 048
     Dates: start: 20080401

REACTIONS (4)
  - APHAGIA [None]
  - GASTROOESOPHAGEAL REFLUX DISEASE [None]
  - UPPER AIRWAY OBSTRUCTION [None]
  - VOMITING [None]
